FAERS Safety Report 6218995-2 (Version None)
Quarter: 2009Q2

REPORT INFORMATION
  Report Type: 
  Country: None (occurrence: None)
  Receive Date: 20090608
  Receipt Date: 20090115
  Transmission Date: 20091009
  Serious: Yes (Hospitalization)
  Sender: FDA-Public Use
  Company Number: PHHY2009DE01375

PATIENT
  Age: 70 Year
  Sex: Male
  Weight: 91.5 kg

DRUGS (15)
  1. PANTOZOL [Suspect]
     Indication: HELICOBACTER GASTRITIS
     Dosage: 40 MG, BID
     Route: 048
  2. DIOVAN [Suspect]
     Indication: HYPERTENSION
     Dosage: 160 MG, 1 IN 1 D
     Route: 048
  3. EBRANTIL [Suspect]
     Indication: HYPERTENSION
     Dosage: 60 MG, BID
     Route: 048
  4. XIPAMIDE [Suspect]
     Dosage: 20 MG, 1 IN 1 D
     Route: 048
  5. ACETOLYT [Suspect]
     Indication: ACIDOSIS
     Dosage: 2.5 GM, 1 IN 1 D
     Route: 048
     Dates: end: 20080728
  6. ALLOPURINOL [Suspect]
     Indication: HYPERURICAEMIA
     Dosage: 50 MG, 1 IN 1 D
     Route: 048
  7. ASPIRIN [Suspect]
     Indication: PROPHYLAXIS
     Dosage: UNK
     Route: 048
     Dates: start: 20000101
  8. CARVEDILOL [Suspect]
     Indication: HYPERTENSION
     Dosage: 12.5 MG, 1 IN 1 D
     Route: 048
  9. DIGITOXIN [Suspect]
     Indication: CARDIAC FAILURE
     Dosage: 0.07 MG, 1 IN 1 D
     Route: 048
     Dates: start: 20080625, end: 20080720
  10. EINSALPHA [Suspect]
     Indication: HYPERPARATHYROIDISM
     Dosage: 0.25 MCG, 1 IN 1 DAY
     Dates: start: 20080520
  11. LOCOL [Suspect]
     Indication: HYPERPARATHYROIDISM
     Dosage: 20 MG, 1 IN 1 D
     Route: 048
     Dates: start: 20080520
  12. PLAVIX [Suspect]
     Dosage: 75 MG, 1 IN 1 D
     Route: 048
     Dates: start: 20060401, end: 20080720
  13. TORSEMIDE [Suspect]
     Indication: HYPERTENSION
     Dosage: 20 MG, 1 IN 1 D
     Route: 048
  14. NEORECORMON ^BOEHRINGER MANNHEIM^ [Concomitant]
     Indication: ANAEMIA
     Route: 058
  15. MOXONIDINE [Concomitant]
     Indication: HYPERTENSION
     Route: 048

REACTIONS (11)
  - ANAEMIA [None]
  - BLOOD CREATININE INCREASED [None]
  - BLOOD IRON DECREASED [None]
  - BLOOD UREA INCREASED [None]
  - CARDIOACTIVE DRUG LEVEL INCREASED [None]
  - GENERAL PHYSICAL HEALTH DETERIORATION [None]
  - HAEMATOCRIT DECREASED [None]
  - HAEMOGLOBIN DECREASED [None]
  - MALAISE [None]
  - NAUSEA [None]
  - RENAL IMPAIRMENT [None]
